FAERS Safety Report 5169000-0 (Version None)
Quarter: 2006Q4

REPORT INFORMATION
  Report Type: 
  Country: None (occurrence: None)
  Receive Date: 20061201
  Receipt Date: 20061122
  Transmission Date: 20070319
  Serious: Yes (Other)
  Sender: FDA-Public Use
  Company Number: 2006US-04645

PATIENT
  Age: 33 Year
  Sex: Male

DRUGS (2)
  1. ISOTRETINOIN [Suspect]
     Dosage: 40 MG
  2. AMNESTEEM [Concomitant]

REACTIONS (2)
  - HEADACHE [None]
  - TUNNEL VISION [None]
